FAERS Safety Report 5720662-6 (Version None)
Quarter: 2008Q2

REPORT INFORMATION
  Report Type: 
  Country: None (occurrence: None)
  Receive Date: 20080429
  Receipt Date: 20080418
  Transmission Date: 20081010
  Serious: Yes (Other)
  Sender: FDA-Public Use
  Company Number: IE-JNJFOC-20080405461

PATIENT
  Age: 51 Year
  Sex: Male

DRUGS (8)
  1. REMICADE [Suspect]
     Indication: CROHN'S DISEASE
  2. PENTASA [Concomitant]
  3. GALFER [Concomitant]
  4. IMURAN [Concomitant]
  5. FOSAMAX [Concomitant]
  6. ZISPIN [Concomitant]
  7. CALOGEN [Concomitant]
  8. FRESUBIN [Concomitant]

REACTIONS (2)
  - ERYTHEMA [None]
  - FLUSHING [None]
